FAERS Safety Report 10481605 (Version 1)
Quarter: 2014Q3

REPORT INFORMATION
  Report Type: Spontaneous
  Country: DE (occurrence: DE)
  Receive Date: 20140929
  Receipt Date: 20140929
  Transmission Date: 20150326
  Serious: Yes (Hospitalization, Other)
  Sender: FDA-Public Use
  Company Number: DE-SA-2014SA129930

PATIENT
  Age: 0 Day
  Sex: Male
  Weight: .88 kg

DRUGS (5)
  1. CLEXANE [Suspect]
     Active Substance: ENOXAPARIN SODIUM
     Indication: MATERNAL EXPOSURE TIMING UNSPECIFIED
     Route: 064
     Dates: start: 20121118, end: 20130628
  2. FAMPYRA [Suspect]
     Active Substance: DALFAMPRIDINE
     Indication: MATERNAL EXPOSURE TIMING UNSPECIFIED
     Route: 064
     Dates: start: 20121118
  3. GABAPENTIN. [Suspect]
     Active Substance: GABAPENTIN
     Indication: MATERNAL EXPOSURE TIMING UNSPECIFIED
     Route: 064
     Dates: start: 20121118, end: 20130628
  4. TYSABRI [Suspect]
     Active Substance: NATALIZUMAB
     Indication: MATERNAL EXPOSURE TIMING UNSPECIFIED
     Route: 064
     Dates: start: 20121118, end: 20121206
  5. REMERGIL [Suspect]
     Active Substance: MIRTAZAPINE
     Indication: MATERNAL EXPOSURE TIMING UNSPECIFIED
     Route: 064
     Dates: start: 20130226, end: 20130628

REACTIONS (9)
  - Neonatal respiratory distress syndrome [Recovered/Resolved]
  - Atrial septal defect [Unknown]
  - Osteopenia [Unknown]
  - Feeding disorder neonatal [Recovered/Resolved]
  - Hypospadias [Not Recovered/Not Resolved]
  - Low birth weight baby [Recovering/Resolving]
  - Foetal growth restriction [Unknown]
  - Retinopathy [Unknown]
  - Foetal exposure during pregnancy [Unknown]

NARRATIVE: CASE EVENT DATE: 20130628
